FAERS Safety Report 8094005-X (Version None)
Quarter: 2012Q1

REPORT INFORMATION
  Report Type: 
  Country: None (occurrence: None)
  Receive Date: 20120126
  Receipt Date: 20120120
  Transmission Date: 20120608
  Serious: Yes (Other)
  Sender: FDA-Public Use
  Company Number: AUR-APL-2011-04934

PATIENT
  Age: 20 Year
  Sex: Female

DRUGS (2)
  1. LAMOTRIGINE [Suspect]
     Indication: EPILEPSY
     Dosage: 200 MG (100 MG,2 IN 1 D),ORAL
     Route: 048
     Dates: start: 20061201
  2. FOLIC ACID [Concomitant]

REACTIONS (4)
  - ABORTION INDUCED [None]
  - HAEMATOMA [None]
  - MATERNAL EXPOSURE DURING PREGNANCY [None]
  - PLACENTAL DISORDER [None]
